FAERS Safety Report 5239341-7 (Version None)
Quarter: 2007Q1

REPORT INFORMATION
  Report Type: 
  Country: None (occurrence: None)
  Receive Date: 20070216
  Receipt Date: 20070207
  Transmission Date: 20070707
  Serious: Yes (Other)
  Sender: FDA-Public Use
  Company Number: 2007UW02537

PATIENT
  Age: 621 Month
  Sex: Male
  Weight: 68.2 kg

DRUGS (5)
  1. SEROQUEL [Suspect]
     Indication: PSYCHOTIC DISORDER
     Route: 048
     Dates: start: 20050901
  2. SEROQUEL [Suspect]
     Indication: AGGRESSION
     Route: 048
     Dates: start: 20050901
  3. CELEXA [Concomitant]
     Indication: DEPRESSION
     Dates: start: 20010101
  4. THIORIDAZINE HCL [Concomitant]
     Indication: PSYCHOTIC DISORDER
  5. CLONAZEPAM [Concomitant]
     Indication: ANXIETY
     Dosage: 0.75 MG AM / 1 MG PM
     Dates: start: 20010101

REACTIONS (1)
  - WHITE BLOOD CELL COUNT DECREASED [None]
